FAERS Safety Report 4985960-2 (Version None)
Quarter: 2006Q2

REPORT INFORMATION
  Report Type: 
  Country: None (occurrence: None)
  Receive Date: 20060421
  Receipt Date: 20060412
  Transmission Date: 20061013
  Serious: Yes (Death, Life-Threatening)
  Sender: FDA-Public Use
  Company Number: 2005VX000479

PATIENT
  Sex: Female

DRUGS (1)
  1. PERMAX [Suspect]
     Indication: PARKINSON'S DISEASE

REACTIONS (5)
  - AORTIC VALVE STENOSIS [None]
  - FIBROSIS [None]
  - HEART VALVE CALCIFICATION [None]
  - MITRAL VALVE INCOMPETENCE [None]
  - VENTRICULAR HYPERTROPHY [None]
